FAERS Safety Report 8593191-2 (Version None)
Quarter: 2012Q3

REPORT INFORMATION
  Report Type: 
  Country: None (occurrence: None)
  Receive Date: 20120814
  Receipt Date: 20120809
  Transmission Date: 20120928
  Serious: Yes (Hospitalization)
  Sender: FDA-Public Use
  Company Number: IT-PFIZER INC-2012187583

PATIENT
  Age: 71 Year
  Sex: Male

DRUGS (7)
  1. POTASSIUM CHLORIDE [Concomitant]
     Indication: HYPOKALAEMIA
     Dosage: 1 DF, UNK
     Route: 048
  2. MICARDIS HCT [Suspect]
     Indication: HYPERTENSION
     Dosage: 1 DF, DAILY
     Route: 048
     Dates: start: 20120619
  3. FUROSEMIDE [Suspect]
     Indication: HYPERTENSION
     Dosage: 1 DF, DAILY
     Route: 048
     Dates: start: 20110101
  4. CARDURA [Suspect]
     Indication: HYPERTENSION
     Dosage: 1 DF, DAILY
     Route: 048
     Dates: start: 20120619, end: 20120710
  5. NORVASC [Suspect]
     Indication: HYPERTENSION
     Dosage: 1 DF, DAILY
     Route: 048
     Dates: start: 20120101
  6. CLONAZEPAM [Concomitant]
     Dosage: UNK
  7. ASPIRIN [Concomitant]
     Indication: CARDIOVASCULAR EVENT PROPHYLAXIS
     Dosage: UNK

REACTIONS (2)
  - RENAL FAILURE ACUTE [None]
  - HYPOTENSION [None]
